FAERS Safety Report 24287849 (Version 2)
Quarter: 2024Q3

REPORT INFORMATION
  Report Type: Spontaneous
  Country: US (occurrence: US)
  Receive Date: 20240905
  Receipt Date: 20240906
  Transmission Date: 20241017
  Serious: No
  Sender: PFIZER
  Company Number: US-PFIZER INC-202400250140

PATIENT
  Age: 30 Year
  Sex: Female
  Weight: 42.18 kg

DRUGS (1)
  1. VELSIPITY [Suspect]
     Active Substance: ETRASIMOD ARGININE
     Indication: Colitis ulcerative
     Dosage: DOSE UNKNOWN, ROUTE UNKNOWN, FREQUENCY UNKNOWN
     Dates: start: 20240805

REACTIONS (3)
  - Chest pain [Unknown]
  - Headache [Unknown]
  - Vein disorder [Unknown]

NARRATIVE: CASE EVENT DATE: 20240801
